FAERS Safety Report 6674076-5 (Version None)
Quarter: 2010Q2

REPORT INFORMATION
  Report Type: 
  Country: None (occurrence: None)
  Receive Date: 20100409
  Receipt Date: 20100401
  Transmission Date: 20101027
  Serious: Yes (Other)
  Sender: FDA-Public Use
  Company Number: US-BRISTOL-MYERS SQUIBB COMPANY-15047160

PATIENT
  Sex: Female

DRUGS (1)
  1. ABILIFY [Suspect]
     Indication: BIPOLAR DISORDER
     Dosage: SEP06-JUL09,04MAR10:30MG
     Dates: start: 20060901

REACTIONS (4)
  - ABORTION SPONTANEOUS [None]
  - COMA [None]
  - PREGNANCY [None]
  - WHITE BLOOD CELL COUNT INCREASED [None]
